FAERS Safety Report 7177390-2 (Version None)
Quarter: 2010Q4

REPORT INFORMATION
  Report Type: 
  Country: None (occurrence: None)
  Receive Date: 20101220
  Receipt Date: 20101216
  Transmission Date: 20110411
  Serious: Yes (Death, Disabling, Other)
  Sender: FDA-Public Use
  Company Number: PHHY2010JP61626

PATIENT
  Sex: Male
  Weight: 57 kg

DRUGS (5)
  1. SIMULECT [Suspect]
     Indication: RENAL TRANSPLANT
     Dosage: 20 MG, ONCE2SDO
     Route: 042
     Dates: start: 20100209, end: 20100209
  2. SIMULECT [Suspect]
     Dosage: 20 MG, ONCE/SINGLE
     Route: 042
     Dates: start: 20100213, end: 20100213
  3. PROGRAF [Concomitant]
     Indication: RENAL TRANSPLANT
     Dosage: 12 MG
     Route: 048
     Dates: start: 20100209, end: 20100422
  4. CELLCEPT [Concomitant]
     Indication: RENAL TRANSPLANT
     Dosage: 1000 MG
     Route: 048
     Dates: start: 20100209, end: 20100422
  5. MEDROL [Concomitant]
     Indication: RENAL TRANSPLANT
     Dosage: 12 MG
     Route: 048
     Dates: start: 20100209, end: 20100422

REACTIONS (6)
  - HEPATIC FAILURE [None]
  - KIDNEY TRANSPLANT REJECTION [None]
  - LUNG INFECTION [None]
  - PLATELET COUNT DECREASED [None]
  - PROTHROMBIN TIME SHORTENED [None]
  - RENAL GRAFT LOSS [None]
